FAERS Safety Report 5240439-8 (Version None)
Quarter: 2007Q1

REPORT INFORMATION
  Report Type: 
  Country: None (occurrence: None)
  Receive Date: 20061208
  Receipt Date: 20051101
  Transmission Date: 20070707
  Serious: Yes (Other)
  Sender: FDA-Public Use
  Company Number: 2005UW16551

PATIENT
  Age: 78 Year
  Sex: Female
  Weight: 52.616 kg

DRUGS (4)
  1. CRESTOR [Suspect]
     Indication: BLOOD CHOLESTEROL INCREASED
     Dosage: 10 MG DAILY PO
     Route: 048
     Dates: start: 20051020
  2. TOPROL-XL [Concomitant]
  3. ZESTORETIC [Concomitant]
  4. PROTONIX [Concomitant]

REACTIONS (3)
  - MUSCLE TIGHTNESS [None]
  - PARAESTHESIA [None]
  - PERIPHERAL COLDNESS [None]
